FAERS Safety Report 4576198-1 (Version None)
Quarter: 2005Q1

REPORT INFORMATION
  Report Type: 
  Country: None (occurrence: None)
  Receive Date: 20050204
  Receipt Date: 20050128
  Transmission Date: 20050727
  Serious: Yes (Life-Threatening, Hospitalization)
  Sender: FDA-Public Use
  Company Number: D01200500734

PATIENT
  Age: 53 Year
  Sex: Male
  Weight: 64.5 kg

DRUGS (2)
  1. CISPLATIN [Suspect]
     Indication: NEOPLASM MALIGNANT
     Dosage: 100 MG/M2 OTHER-INTRAVENOUS NOS
     Route: 042
     Dates: start: 20050124, end: 20050124
  2. RADIOTHERAPY [Concomitant]

REACTIONS (5)
  - ACUTE RESPIRATORY FAILURE [None]
  - ATRIAL FIBRILLATION [None]
  - EMPYEMA [None]
  - PNEUMOTHORAX [None]
  - SEPTIC SHOCK [None]
